FAERS Safety Report 8715499 (Version 2)
Quarter: 2012Q4

REPORT INFORMATION
  Report Type: Report from Study
  Country: DE (occurrence: DE)
  Receive Date: 20120809
  Receipt Date: 20121016
  Transmission Date: 20130627
  Serious: Yes (Hospitalization)
  Sender: FDA-Public Use
  Company Number: DE-ROCHE-1098432

PATIENT
  Age: 73 Year
  Sex: Female
  Weight: 80 kg

DRUGS (10)
  1. BEVACIZUMAB [Suspect]
     Indication: BREAST CANCER
     Dosage: LAST DOSE PRIOR TO SAE: 23/JUL/2012
     Route: 042
     Dates: start: 20120109
  2. CAPECITABINE [Suspect]
     Indication: BREAST CANCER
     Dosage: LAST DOSE PRIOR TO SAE: 03/AUG/2012
     Route: 048
     Dates: start: 20120109
  3. VINORELBINE [Suspect]
     Indication: BREAST CANCER
     Dosage: LAST DOSE PRIOR TO SAE: 30/JUL/2012
     Route: 042
     Dates: start: 20120109
  4. SELENASE [Concomitant]
     Route: 065
  5. CLEXANE [Concomitant]
     Route: 065
  6. DIGITOXIN [Concomitant]
     Route: 065
  7. TRAMAGIT [Concomitant]
     Route: 065
  8. NOVAMINSULFON [Concomitant]
     Dosage: 60 DROPS
     Route: 065
  9. ZOFRAN [Concomitant]
     Route: 065
  10. CONCOR [Concomitant]
     Route: 065

REACTIONS (1)
  - Diarrhoea [Recovered/Resolved]
